FAERS Safety Report 20947151 (Version 2)
Quarter: 2023Q1

REPORT INFORMATION
  Report Type: Report from Study
  Country: US (occurrence: US)
  Receive Date: 20220610
  Receipt Date: 20230314
  Transmission Date: 20230417
  Serious: Yes (Death, Hospitalization)
  Sender: FDA-Public Use
  Company Number: US-UCBSA-2022031900

PATIENT
  Age: 70 Year
  Sex: Male

DRUGS (1)
  1. ROTIGOTINE [Suspect]
     Active Substance: ROTIGOTINE
     Indication: Product used for unknown indication
     Dosage: 8 MILLIGRAM, ONCE DAILY (QD) PATCH
     Route: 062
     Dates: end: 20230210

REACTIONS (3)
  - Cerebral haemorrhage [Fatal]
  - Tremor [Recovered/Resolved]
  - Back pain [Recovered/Resolved]

NARRATIVE: CASE EVENT DATE: 20220523
